FAERS Safety Report 9505628 (Version 1)
Quarter: 2013Q1

REPORT INFORMATION
  Report Type: Spontaneous
  Country: US (occurrence: None)
  Receive Date: 20130220
  Receipt Date: 20130220
  Transmission Date: 20140127
  Serious: No
  Sender: FDA-Public Use
  Company Number: 1000041224

PATIENT
  Age: 81 Year
  Sex: Female

DRUGS (5)
  1. VIIBYRD [Suspect]
     Indication: DEPRESSION
     Dosage: 10 MG (10 MG, 1 IN 1 D), ORAL
     Route: 048
     Dates: start: 201211, end: 2012
  2. PREDNISONE (PREDNISONE) (PREDNISONE) [Concomitant]
  3. TRIAMTERENE (TRIAMTERENE) (TRIAMTERENE) [Concomitant]
  4. CRESTOR (ROSUVASTATIN CALCIUM) [Concomitant]
  5. VICODIN (ACETAMINOPHEN, HYDROCODONE) (ACETAMINOPHEN, HYDROCODONE) [Concomitant]

REACTIONS (1)
  - Hallucination [None]
